FAERS Safety Report 12319667 (Version 3)
Quarter: 2019Q2

REPORT INFORMATION
  Report Type: Spontaneous
  Country: US (occurrence: US)
  Receive Date: 20160429
  Receipt Date: 20190509
  Transmission Date: 20190711
  Serious: No
  Sender: FDA-Public Use
  Company Number: US-ROCHE-1630412

PATIENT
  Sex: Male

DRUGS (11)
  1. ASPIRIN [ACETYLSALICYLIC ACID] [Concomitant]
     Active Substance: ASPIRIN
  2. OMEPRAZOLE. [Concomitant]
     Active Substance: OMEPRAZOLE
  3. ESBRIET [Suspect]
     Active Substance: PIRFENIDONE
     Indication: IDIOPATHIC PULMONARY FIBROSIS
     Route: 048
     Dates: start: 20150618
  4. NORCO [Concomitant]
     Active Substance: ACETAMINOPHEN\HYDROCODONE BITARTRATE
  5. ELIQUIS [Concomitant]
     Active Substance: APIXABAN
  6. ESBRIET [Suspect]
     Active Substance: PIRFENIDONE
     Dosage: 3 CAPS DAILY
     Route: 048
     Dates: start: 20150616
  7. AZELASTINE. [Concomitant]
     Active Substance: AZELASTINE HYDROCHLORIDE
  8. NASACORT [Concomitant]
     Active Substance: TRIAMCINOLONE ACETONIDE
  9. SPIRIVA [Concomitant]
     Active Substance: TIOTROPIUM BROMIDE MONOHYDRATE
  10. LANOXIN [Concomitant]
     Active Substance: DIGOXIN
  11. BYSTOLIC [Concomitant]
     Active Substance: NEBIVOLOL HYDROCHLORIDE

REACTIONS (7)
  - Nausea [Unknown]
  - Skin exfoliation [Unknown]
  - Infection [Unknown]
  - Pruritus [Unknown]
  - Mass [Unknown]
  - Dry skin [Unknown]
  - Headache [Unknown]
